FAERS Safety Report 20043557 (Version 1)
Quarter: 2021Q4

REPORT INFORMATION
  Report Type: Report from Study
  Country: JP (occurrence: JP)
  Receive Date: 20211108
  Receipt Date: 20211108
  Transmission Date: 20220303
  Serious: Yes (Other)
  Sender: FDA-Public Use
  Company Number: JP-RECORDATI RARE DISEASES INC.-2020004812

PATIENT
  Age: 5 Day
  Sex: Male
  Weight: 2.396 kg

DRUGS (5)
  1. NEOPROFEN [Suspect]
     Active Substance: IBUPROFEN LYSINE
     Indication: Patent ductus arteriosus
     Dosage: 23.8 MILLIGRAM, QD
     Route: 042
     Dates: start: 20190513, end: 20190513
  2. NEOPROFEN [Suspect]
     Active Substance: IBUPROFEN LYSINE
     Dosage: 25.5 MILLIGRAM, QD
     Route: 042
     Dates: start: 20190515, end: 20190515
  3. NEOPROFEN [Suspect]
     Active Substance: IBUPROFEN LYSINE
     Dosage: 12.5 MILLIGRAM, QD
     Route: 042
     Dates: start: 20190516, end: 20190516
  4. LASIX [Concomitant]
     Active Substance: FUROSEMIDE
     Indication: Hyponatraemia
     Dosage: UNK UNK, UNK
     Route: 042
     Dates: start: 20190515, end: 20190516
  5. SODIUM CHLORIDE [Concomitant]
     Active Substance: SODIUM CHLORIDE
     Indication: Hyponatraemia
     Dosage: UNK UNK, UNK
     Route: 048
     Dates: start: 20190515, end: 20190523

REACTIONS (2)
  - Hyponatraemia [Unknown]
  - Hyperkalaemia [Unknown]

NARRATIVE: CASE EVENT DATE: 20190514
